FAERS Safety Report 21312269 (Version 2)
Quarter: 2024Q3

REPORT INFORMATION
  Report Type: Spontaneous
  Country: US (occurrence: None)
  Receive Date: 20220909
  Receipt Date: 20240906
  Transmission Date: 20241016
  Serious: No
  Sender: DOMPE FARMACEUTICI
  Company Number: US-ARIS GLOBAL-202205-0907

PATIENT
  Age: 76 Year
  Sex: Female
  Weight: 61.23 kg

DRUGS (12)
  1. OXERVATE [Suspect]
     Active Substance: CENEGERMIN-BKBJ
     Indication: Neurotrophic keratopathy
     Route: 047
     Dates: start: 20220509, end: 20220704
  2. OXERVATE [Suspect]
     Active Substance: CENEGERMIN-BKBJ
     Route: 047
     Dates: start: 20230711
  3. OXERVATE [Suspect]
     Active Substance: CENEGERMIN-BKBJ
     Route: 047
     Dates: start: 20230830
  4. OXERVATE [Suspect]
     Active Substance: CENEGERMIN-BKBJ
  5. OXERVATE [Suspect]
     Active Substance: CENEGERMIN-BKBJ
  6. OXERVATE [Suspect]
     Active Substance: CENEGERMIN-BKBJ
  7. VITAMINS [Concomitant]
     Active Substance: VITAMINS
  8. KETOROLAC TROMETHAMINE [Concomitant]
     Active Substance: KETOROLAC TROMETHAMINE
  9. LOTEMAX SM [Concomitant]
     Active Substance: LOTEPREDNOL ETABONATE
  10. DUREZOL [Concomitant]
     Active Substance: DIFLUPREDNATE
  11. AMLODIPINE BESYLATE [Concomitant]
     Active Substance: AMLODIPINE BESYLATE
  12. RESTASIS [Concomitant]
     Active Substance: CYCLOSPORINE

REACTIONS (5)
  - Eyelid pain [Unknown]
  - Eye pain [Unknown]
  - Somnolence [Not Recovered/Not Resolved]
  - Dry eye [Not Recovered/Not Resolved]
  - Asthenopia [Not Recovered/Not Resolved]

NARRATIVE: CASE EVENT DATE: 20230913
